FAERS Safety Report 22089508 (Version 1)
Quarter: 2023Q1

REPORT INFORMATION
  Report Type: Spontaneous
  Country: US (occurrence: None)
  Receive Date: 20230311
  Receipt Date: 20230311
  Transmission Date: 20230418
  Serious: No
  Sender: FDA-Public Use
  Company Number: None

PATIENT
  Age: 16 Year
  Sex: Male

DRUGS (1)
  1. METHYLPHENIDATE [Suspect]
     Active Substance: METHYLPHENIDATE
     Indication: Attention deficit hyperactivity disorder
     Dosage: 0 TABLET(S) ORAL?
     Route: 048
     Dates: start: 20230217

REACTIONS (5)
  - Therapeutic product effect incomplete [None]
  - Mobility decreased [None]
  - Educational problem [None]
  - Disability [None]
  - Product substitution issue [None]

NARRATIVE: CASE EVENT DATE: 20230210
